FAERS Safety Report 9171181 (Version 1)
Quarter: 2013Q1

REPORT INFORMATION
  Report Type: Spontaneous
  Country: CA (occurrence: CA)
  Receive Date: 20130319
  Receipt Date: 20130319
  Transmission Date: 20140127
  Serious: Yes (Death)
  Sender: FDA-Public Use
  Company Number: PHHY2012CA062219

PATIENT
  Sex: Male

DRUGS (1)
  1. ZOMETA [Suspect]
     Indication: PROSTATE CANCER
     Dosage: 4 MG, EVERY 4 WEEKS
     Route: 042
     Dates: start: 20120418

REACTIONS (20)
  - Death [Fatal]
  - Glomerular filtration rate decreased [Unknown]
  - Lymphocyte count decreased [Unknown]
  - Blood iron decreased [Unknown]
  - Mean cell haemoglobin concentration decreased [Unknown]
  - Blood thyroid stimulating hormone increased [Unknown]
  - Iron binding capacity total decreased [Unknown]
  - Red blood cells urine positive [Unknown]
  - Urine potassium increased [Unknown]
  - Urea urine increased [Unknown]
  - Creatinine urine increased [Unknown]
  - Urine uric acid increased [Unknown]
  - Blood alkaline phosphatase decreased [Unknown]
  - Blood cholesterol increased [Unknown]
  - Alpha 2 globulin decreased [Unknown]
  - Urine albumin/creatinine ratio increased [Unknown]
  - Protein total decreased [Unknown]
  - Red blood cell count decreased [Unknown]
  - Haemoglobin decreased [Unknown]
  - Haematocrit decreased [Unknown]
